FAERS Safety Report 9239386 (Version 1)
Quarter: 2013Q2

REPORT INFORMATION
  Report Type: Spontaneous
  Country: US (occurrence: US)
  Receive Date: 20130418
  Receipt Date: 20130418
  Transmission Date: 20140414
  Serious: No
  Sender: FDA-Public Use
  Company Number: US-COVIDIEN/TYCO HEALTHCARE/MALLINCKRODT-T201201207

PATIENT
  Age: 43 Year
  Sex: Female
  Weight: 99.77 kg

DRUGS (2)
  1. METHADOSE [Suspect]
     Indication: DRUG DEPENDENCE
     Dosage: 80 MG, QD
     Route: 048
     Dates: end: 201111
  2. SYNTHROID [Concomitant]
     Indication: HYPOTHYROIDISM
     Dosage: 150 MG, QD
     Route: 048

REACTIONS (5)
  - Diarrhoea [Not Recovered/Not Resolved]
  - Sneezing [Not Recovered/Not Resolved]
  - Alopecia [Not Recovered/Not Resolved]
  - Constipation [Recovered/Resolved]
  - Weight increased [Recovered/Resolved]
